FAERS Safety Report 7829590-3 (Version None)
Quarter: 2011Q4

REPORT INFORMATION
  Report Type: 
  Country: None (occurrence: None)
  Receive Date: 20111020
  Receipt Date: 20111011
  Transmission Date: 20120403
  Serious: Yes (Hospitalization)
  Sender: FDA-Public Use
  Company Number: US-ASTRAZENECA-2010SE59491

PATIENT
  Age: 71 Year
  Sex: Female
  Weight: 77.6 kg

DRUGS (4)
  1. SEROQUEL [Suspect]
     Indication: MENTAL DISORDER
     Route: 048
     Dates: start: 20080101
  2. GLIPIZIDE [Concomitant]
  3. METFORMIN HCL [Concomitant]
  4. PREMIUM [Concomitant]

REACTIONS (6)
  - MALAISE [None]
  - DEPRESSION [None]
  - ARTHROPOD BITE [None]
  - OEDEMA PERIPHERAL [None]
  - OFF LABEL USE [None]
  - MULTIPLE ALLERGIES [None]
